FAERS Safety Report 6597190-1 (Version None)
Quarter: 2010Q1

REPORT INFORMATION
  Report Type: 
  Country: None (occurrence: None)
  Receive Date: 20100223
  Receipt Date: 20100211
  Transmission Date: 20100710
  Serious: Yes (Disabling, Other)
  Sender: FDA-Public Use
  Company Number: US-PFIZER INC-2010021500

PATIENT
  Sex: Female
  Weight: 58.957 kg

DRUGS (3)
  1. ALPRAZOLAM [Suspect]
     Dosage: UNK
     Dates: start: 20050901
  2. ALPRAZOLAM [Suspect]
     Indication: PANIC ATTACK
     Dosage: UNK
     Dates: start: 20091001
  3. ALPRAZOLAM [Suspect]
     Indication: ANXIETY

REACTIONS (6)
  - COELIAC DISEASE [None]
  - DEHYDRATION [None]
  - FIBROMYALGIA [None]
  - LYME DISEASE [None]
  - VOMITING [None]
  - WEIGHT DECREASED [None]
